FAERS Safety Report 11039689 (Version 2)
Quarter: 2015Q2

REPORT INFORMATION
  Report Type: Spontaneous
  Country: US (occurrence: US)
  Receive Date: 20150416
  Receipt Date: 20150525
  Transmission Date: 20150821
  Serious: Yes (Other)
  Sender: FDA-Public Use
  Company Number: US-JNJFOC-20140704490

PATIENT
  Sex: Male

DRUGS (5)
  1. XARELTO [Suspect]
     Active Substance: RIVAROXABAN
     Indication: PULMONARY EMBOLISM
     Route: 048
     Dates: start: 201404
  2. XARELTO [Suspect]
     Active Substance: RIVAROXABAN
     Indication: PULMONARY EMBOLISM
     Dosage: AFTER BREAKFAST
     Route: 048
  3. TEKTURNA [Concomitant]
     Active Substance: ALISKIREN HEMIFUMARATE
     Indication: HYPERTENSION
     Route: 065
  4. DOXAZOSIN [Concomitant]
     Active Substance: DOXAZOSIN\DOXAZOSIN MESYLATE
     Indication: BENIGN PROSTATIC HYPERPLASIA
     Route: 065
  5. ADVAIR HFA [Concomitant]
     Active Substance: FLUTICASONE PROPIONATE\SALMETEROL XINAFOATE
     Indication: CHRONIC OBSTRUCTIVE PULMONARY DISEASE
     Route: 065

REACTIONS (4)
  - Epistaxis [Recovered/Resolved]
  - Inappropriate schedule of drug administration [Unknown]
  - Arthritis [Not Recovered/Not Resolved]
  - Muscle spasms [Not Recovered/Not Resolved]

NARRATIVE: CASE EVENT DATE: 2014
